FAERS Safety Report 7116232-8 (Version None)
Quarter: 2010Q4

REPORT INFORMATION
  Report Type: 
  Country: None (occurrence: None)
  Receive Date: 20101115
  Receipt Date: 20101105
  Transmission Date: 20110411
  Serious: Yes (Other)
  Sender: FDA-Public Use
  Company Number: JPI-P-012950

PATIENT
  Age: 59 Year
  Sex: Female
  Weight: 67.1324 kg

DRUGS (5)
  1. XYREM [Suspect]
     Indication: CATAPLEXY
     Dosage: SEE IMAGE; ORAL
     Route: 048
     Dates: start: 20100209, end: 20100101
  2. XYREM [Suspect]
     Indication: CATAPLEXY
     Dosage: SEE IMAGE; ORAL
     Route: 048
     Dates: start: 20100128, end: 20100208
  3. XYREM [Suspect]
     Indication: CATAPLEXY
     Dosage: SEE IMAGE; ORAL
     Route: 048
     Dates: start: 20100101, end: 20101026
  4. XYREM [Suspect]
     Indication: CATAPLEXY
     Dosage: SEE IMAGE; ORAL
     Route: 048
     Dates: start: 20101102
  5. UNSPECIFIED CONCOMITANT MEDICATIONS [Concomitant]

REACTIONS (16)
  - ABNORMAL DREAMS [None]
  - ANXIETY [None]
  - BALANCE DISORDER [None]
  - BLADDER PAIN [None]
  - BLOOD URINE PRESENT [None]
  - CONDITION AGGRAVATED [None]
  - DEPRESSION [None]
  - DYSKINESIA [None]
  - INSOMNIA [None]
  - PANIC ATTACK [None]
  - SOMNOLENCE [None]
  - SPEECH DISORDER [None]
  - SPINAL DISORDER [None]
  - SUICIDAL IDEATION [None]
  - TREMOR [None]
  - URINE ODOUR ABNORMAL [None]
